FAERS Safety Report 6655611-X (Version None)
Quarter: 2010Q1

REPORT INFORMATION
  Report Type: 
  Country: None (occurrence: None)
  Receive Date: 20100329
  Receipt Date: 20100318
  Transmission Date: 20100710
  Serious: Yes (Hospitalization)
  Sender: FDA-Public Use
  Company Number: US-ASTRAZENECA-2010SE12831

PATIENT
  Age: 57 Year
  Sex: Female
  Weight: 62 kg

DRUGS (10)
  1. ELAVIL [Suspect]
  2. REBIF [Suspect]
     Indication: MULTIPLE SCLEROSIS
     Dosage: 44 MCG 3 TIMES PER WEEK
     Route: 058
     Dates: start: 20090513
  3. CYMBALTA [Suspect]
  4. INDERAL [Concomitant]
  5. DETROL [Concomitant]
  6. LALAN [Concomitant]
  7. VICODIN [Concomitant]
  8. POTASSIUM [Concomitant]
  9. KEPPRA [Concomitant]
  10. PREMARIN [Concomitant]

REACTIONS (2)
  - GRAND MAL CONVULSION [None]
  - HYPERTENSIVE CRISIS [None]
